FAERS Safety Report 16673946 (Version 1)
Quarter: 2019Q3

REPORT INFORMATION
  Report Type: Report from Study
  Country: US (occurrence: US)
  Receive Date: 20190806
  Receipt Date: 20190806
  Transmission Date: 20191004
  Serious: Yes (Death, Hospitalization)
  Sender: FDA-Public Use
  Company Number: US-ADAMAS PHARMA, LLC-2019ADA00880

PATIENT
  Sex: Male
  Weight: 56.69 kg

DRUGS (7)
  1. AMBIEN CR [Concomitant]
     Active Substance: ZOLPIDEM TARTRATE
  2. GOCOVRI [Suspect]
     Active Substance: AMANTADINE
     Dosage: 274 MG, 1X/DAY AT BEDTIME
     Route: 048
     Dates: start: 20181003
  3. LEVODOPA [Concomitant]
     Active Substance: LEVODOPA
  4. TIAZAC [Concomitant]
     Active Substance: DILTIAZEM HYDROCHLORIDE
  5. GOCOVRI [Suspect]
     Active Substance: AMANTADINE
     Indication: DYSKINESIA
     Dosage: 137 MG, 1X/DAY AT BEDTIME X 7 DAYS
     Route: 048
     Dates: start: 20180926, end: 20181002
  6. GOCOVRI [Suspect]
     Active Substance: AMANTADINE
     Dosage: 274 MG, 1X/DAY AT BEDTIME
     Route: 048
     Dates: end: 201906
  7. CARBIDOPA. [Concomitant]
     Active Substance: CARBIDOPA

REACTIONS (7)
  - Subdural haematoma [Unknown]
  - Blood sodium decreased [Unknown]
  - Peripheral swelling [Not Recovered/Not Resolved]
  - Fall [Unknown]
  - Death [Fatal]
  - Surgery [Unknown]
  - Lower limb fracture [Unknown]

NARRATIVE: CASE EVENT DATE: 2019
